FAERS Safety Report 15714215 (Version 1)
Quarter: 2018Q4

REPORT INFORMATION
  Report Type: Spontaneous
  Country: JP (occurrence: JP)
  Receive Date: 20181212
  Receipt Date: 20181212
  Transmission Date: 20190205
  Serious: Yes (Other)
  Sender: FDA-Public Use
  Company Number: JP-PFIZER INC-2018504997

PATIENT

DRUGS (1)
  1. CABASER [Suspect]
     Active Substance: CABERGOLINE
     Dosage: ONCE WEEKLY
     Route: 048

REACTIONS (3)
  - Suicidal ideation [Unknown]
  - Depression [Unknown]
  - Hallucination [Unknown]
